FAERS Safety Report 6139514-5 (Version None)
Quarter: 2009Q2

REPORT INFORMATION
  Report Type: 
  Country: None (occurrence: None)
  Receive Date: 20090401
  Receipt Date: 20090319
  Transmission Date: 20091009
  Serious: Yes (Life-Threatening, Hospitalization)
  Sender: FDA-Public Use
  Company Number: ES-SANOFI-SYNTHELABO-A01200903164

PATIENT
  Age: 79 Year
  Sex: Male

DRUGS (2)
  1. TRIPTORELIN [Concomitant]
     Indication: PROSTATE CANCER
     Dosage: UNK
  2. ELIGARD [Suspect]
     Indication: PROSTATE CANCER
     Dosage: UNK
     Route: 058
     Dates: start: 20090312, end: 20090312

REACTIONS (4)
  - ANAPHYLACTIC SHOCK [None]
  - HYPERHIDROSIS [None]
  - HYPOTENSION [None]
  - SYNCOPE [None]
